FAERS Safety Report 4553780-9 (Version None)
Quarter: 2004Q4

REPORT INFORMATION
  Report Type: 
  Country: None (occurrence: None)
  Receive Date: 20041227
  Receipt Date: 20041111
  Transmission Date: 20050328
  Serious: No
  Sender: FDA-Public Use
  Company Number: 04P-163-0279663-00

PATIENT
  Age: 73 Year
  Sex: Female
  Weight: 71.6683 kg

DRUGS (10)
  1. HUMIRA [Suspect]
     Indication: RHEUMATOID ARTHRITIS
     Dosage: 40 MG, 1 IN 2 WK, SUBCUTANEOUS
     Route: 058
     Dates: start: 20040929
  2. FOLIC ACID [Concomitant]
  3. TOCOPHEROL CONCENTRATE CAP [Concomitant]
  4. GLUCOSAMINE [Concomitant]
  5. CALCIUM GLUCONATE [Concomitant]
  6. ATENOLOL [Concomitant]
  7. LEVOTHYROXINE SODIUM [Concomitant]
  8. MAXZIDE [Concomitant]
  9. SALSALATE [Concomitant]
  10. WARFARIN [Concomitant]

REACTIONS (10)
  - HERPES SIMPLEX [None]
  - INJECTION SITE ERYTHEMA [None]
  - INJECTION SITE HAEMORRHAGE [None]
  - INJECTION SITE INDURATION [None]
  - INJECTION SITE PRURITUS [None]
  - INJECTION SITE RASH [None]
  - INJECTION SITE REACTION [None]
  - INJECTION SITE URTICARIA [None]
  - NAUSEA [None]
  - PYREXIA [None]
